FAERS Safety Report 7010479-7 (Version None)
Quarter: 2010Q3

REPORT INFORMATION
  Report Type: 
  Country: None (occurrence: None)
  Receive Date: 20100923
  Receipt Date: 20100910
  Transmission Date: 20110219
  Serious: Yes (Hospitalization)
  Sender: FDA-Public Use
  Company Number: PHHY2010JP34372

PATIENT
  Sex: Female
  Weight: 51 kg

DRUGS (1)
  1. ZOMETA [Suspect]
     Indication: BREAST CANCER
     Dosage: 4 MG, QMO
     Route: 042
     Dates: start: 20070927, end: 20100513

REACTIONS (6)
  - ACIDOSIS [None]
  - ANAEMIA [None]
  - AZOTAEMIA [None]
  - BONE MARROW FAILURE [None]
  - HAEMODIALYSIS [None]
  - RENAL FAILURE ACUTE [None]
